FAERS Safety Report 9158538 (Version 1)
Quarter: 2013Q1

REPORT INFORMATION
  Report Type: Spontaneous
  Country: US (occurrence: US)
  Receive Date: 20130312
  Receipt Date: 20130312
  Transmission Date: 20140127
  Serious: No
  Sender: FDA-Public Use
  Company Number: US-BAYER-2013-030494

PATIENT
  Sex: Female
  Weight: 76.64 kg

DRUGS (10)
  1. BETASERON [Suspect]
     Indication: MULTIPLE SCLEROSIS
     Dosage: UNK
     Route: 065
  2. ADVIL [IBUPROFEN] [Concomitant]
  3. ATORVASTATIN [Concomitant]
  4. CYMBALTA [Concomitant]
  5. DICLOFENAC [DICLOFENAC] [Concomitant]
  6. GABAPENTIN [Concomitant]
  7. LISINOPRIL [Concomitant]
  8. METHOCARBAMOL [METHOCARBAMOL] [Concomitant]
  9. VITAMIN D NOS [Concomitant]
  10. ZOLPIDEM [Concomitant]

REACTIONS (1)
  - Influenza like illness [None]
